FAERS Safety Report 14844036 (Version 1)
Quarter: 2018Q2

REPORT INFORMATION
  Report Type: Spontaneous
  Country: DE (occurrence: DE)
  Receive Date: 20180503
  Receipt Date: 20180503
  Transmission Date: 20180711
  Serious: Yes (Other)
  Sender: FDA-Public Use
  Company Number: DE-009507513-1805DEU000256

PATIENT
  Sex: Female

DRUGS (2)
  1. NUVARING [Suspect]
     Active Substance: ETHINYL ESTRADIOL\ETONOGESTREL
     Indication: CONTRACEPTION
     Dosage: 1 DF, UNK
     Route: 067
  2. ANESTHETIC [Interacting]
     Active Substance: BENZOCAINE\LIDOCAINE HYDROCHLORIDE

REACTIONS (2)
  - Wisdom teeth removal [Unknown]
  - Drug interaction [Unknown]

NARRATIVE: CASE EVENT DATE: 20180423
